FAERS Safety Report 7771372-5 (Version None)
Quarter: 2011Q3

REPORT INFORMATION
  Report Type: 
  Country: None (occurrence: None)
  Receive Date: 20110922
  Receipt Date: 20110913
  Transmission Date: 20111222
  Serious: Yes (Hospitalization, Other)
  Sender: FDA-Public Use
  Company Number: US-ABBOTT-11P-163-0717396-00

PATIENT
  Sex: Female
  Weight: 70 kg

DRUGS (53)
  1. PHENOSODIUM PHENOLATE MOUTHWASH [Concomitant]
     Indication: DRY MOUTH
     Dosage: 1 APPLICATION DAILY, AS NEEDED
     Route: 048
     Dates: start: 20080101
  2. MELOXICAM [Concomitant]
     Indication: BACK PAIN
     Route: 048
     Dates: start: 20110214
  3. DESOWEN [Concomitant]
     Indication: SEBORRHOEIC DERMATITIS
     Dosage: AS REQUIRED
     Route: 061
     Dates: start: 20090723, end: 20110313
  4. FOLIC ACID [Concomitant]
     Indication: MEDICAL DIET
     Dosage: 400 MG DAILY
     Route: 048
     Dates: start: 20100411, end: 20110312
  5. VITAMIN D [Concomitant]
     Indication: MEDICAL DIET
     Route: 048
     Dates: start: 20090410, end: 20110313
  6. ZOFRAN [Concomitant]
     Indication: NAUSEA
     Route: 048
     Dates: start: 20110330, end: 20110410
  7. CARBIDOPA + LEVODOPA [Concomitant]
     Indication: PARKINSON'S DISEASE
     Dosage: 25/100, 6 TABS DAILY, AS NEEDED
     Dates: start: 20110223, end: 20110313
  8. METAXALONE [Concomitant]
     Indication: MUSCLE SPASMS
     Dosage: 400-800 MG 3X/DAY, 2400 MG DAILY
     Dates: start: 20110110, end: 20110317
  9. METAXALONE [Concomitant]
     Dates: start: 20110318, end: 20110410
  10. DESOWEN [Concomitant]
     Indication: DERMATITIS
     Route: 061
     Dates: start: 20110401, end: 20110415
  11. GLUCOSAMINE SULFATE [Concomitant]
     Indication: MEDICAL DIET
     Route: 048
     Dates: start: 20110412, end: 20110415
  12. FOLIC ACID [Concomitant]
     Dates: start: 20110330
  13. ZOLEDRONIC ACID [Concomitant]
     Indication: OSTEOPOROSIS
     Route: 042
     Dates: start: 20091103
  14. LEVODOPA-CARBIDOPA INTESTINAL GEL [Concomitant]
     Dates: start: 20110412
  15. HYDROCODONE BITARTRATE AND ACETAMINOPHEN [Suspect]
     Indication: BACK PAIN
     Dosage: 5/500 QID AS NEEDED
     Route: 048
     Dates: start: 20110212, end: 20110312
  16. VITAMIN B-12 [Concomitant]
     Indication: NEUROPATHY PERIPHERAL
     Route: 060
     Dates: start: 20100701, end: 20110313
  17. VITAMIN B-12 [Concomitant]
     Dosage: 1000 MCG DAILY
     Dates: start: 20110322
  18. VITAMIN D [Concomitant]
     Dates: start: 20110409, end: 20110411
  19. SARNA ANTI-ITCH LOTION (MENTHOL AND CAMPHOR) [Concomitant]
     Indication: RASH
     Dosage: AS REQUIRED
     Route: 061
     Dates: start: 20091016
  20. MAGNESIUM [Concomitant]
     Indication: MEDICAL DIET
     Route: 048
     Dates: start: 19900101, end: 20110313
  21. MULTI-VITAMIN [Concomitant]
     Dates: start: 20110413
  22. SKELAXIN [Concomitant]
     Indication: MUSCLE SPASMS
     Dates: start: 20110412
  23. ASPIRIN [Concomitant]
     Indication: CARDIOVASCULAR EVENT PROPHYLAXIS
     Route: 048
     Dates: start: 20110322
  24. PANTOPRAZOLE [Concomitant]
     Indication: GASTROOESOPHAGEAL REFLUX DISEASE
     Route: 048
     Dates: start: 20110329, end: 20110410
  25. BACLOFEN [Concomitant]
     Indication: BLADDER DISORDER
     Route: 048
     Dates: start: 20110408, end: 20110418
  26. OMEPRAZOLE [Concomitant]
     Indication: GASTROOESOPHAGEAL REFLUX DISEASE
     Route: 048
     Dates: start: 20100411, end: 20110313
  27. METAXALONE [Concomitant]
     Dates: start: 20110412, end: 20110415
  28. MULTI-VITAMIN [Concomitant]
     Indication: MEDICAL DIET
     Dates: start: 20110330, end: 20110410
  29. SULFATRIM-DS [Concomitant]
     Indication: URINARY TRACT INFECTION
     Dosage: 800/160, TWO TABS DAILY
     Dates: start: 20110310, end: 20110314
  30. DICLOFENAC EPOLAMINUM [Concomitant]
     Indication: BACK PAIN
     Dosage: 2 PATCHES DAILY
     Route: 062
     Dates: start: 20110126, end: 20110321
  31. BENADRYL [Concomitant]
     Indication: INSOMNIA
     Route: 048
     Dates: start: 20100628, end: 20110312
  32. ASCORBIC ACID [Concomitant]
     Indication: MEDICAL DIET
     Dosage: 500 MG DAILY
     Route: 048
     Dates: start: 20100411, end: 20110313
  33. CHARCOAL ACTIVATED [Concomitant]
     Indication: PRODUCT USED FOR UNKNOWN INDICATION
     Dates: start: 20110212
  34. LACTULOSE [Concomitant]
     Route: 048
     Dates: start: 20110409
  35. ZOFRAN [Concomitant]
     Route: 048
     Dates: start: 20110415, end: 20110415
  36. DOCUSATE SODIUM [Concomitant]
     Indication: CONSTIPATION
     Route: 048
     Dates: start: 20110412
  37. THERATEARS [Concomitant]
     Indication: MEDICAL DIET
     Route: 048
     Dates: start: 20110412, end: 20110415
  38. CALCIUM CARBONATE [Concomitant]
     Indication: MEDICAL DIET
     Dates: start: 19900101, end: 20110313
  39. ZINC [Concomitant]
     Indication: MEDICAL DIET
     Route: 048
     Dates: start: 19900101, end: 20110313
  40. AMITIZA [Suspect]
     Indication: PRODUCT USED FOR UNKNOWN INDICATION
     Dates: end: 20110408
  41. CARBIDOPA + LEVODOPA [Concomitant]
     Dates: start: 20110404
  42. CARBOXYMETHYLCELLULOSE SODIUM [Concomitant]
     Indication: DRY EYE
     Dosage: DAILY
     Route: 047
     Dates: start: 20110201, end: 20110301
  43. GLUCOSAMINE SULFATE [Concomitant]
     Indication: OSTEOARTHRITIS
     Route: 048
     Dates: start: 20100411, end: 20110313
  44. RECLAST [Concomitant]
     Indication: OSTEOARTHRITIS
     Route: 042
     Dates: start: 20091103
  45. MULTI-VITAMIN [Concomitant]
     Indication: MACULAR DEGENERATION
  46. CALCIUM MAGNESIUM [Concomitant]
     Indication: MEDICAL DIET
     Route: 048
     Dates: start: 20110413, end: 20110415
  47. HYDROCODONE BITARTRATE AND ACETAMINOPHEN [Suspect]
     Indication: PAIN
     Dates: start: 20110412, end: 20110416
  48. DICLOFENAC EPOLAMINUM [Concomitant]
     Indication: MUSCLE SPASMS
     Dates: start: 20110413, end: 20110416
  49. VITAMIN D [Concomitant]
     Dates: start: 20110411, end: 20110418
  50. LACTULOSE [Concomitant]
     Indication: CONSTIPATION
     Dates: start: 20110328
  51. PANTOPRAZOLE [Concomitant]
     Route: 048
     Dates: start: 20110413, end: 20110415
  52. THERATEARS [Concomitant]
     Indication: DRY EYE
     Dates: start: 20110413, end: 20110415
  53. LEVODOPA-CARBIDOPA INTESTINAL GEL [Concomitant]
     Indication: PRODUCT USED FOR UNKNOWN INDICATION
     Dosage: 5.6 ML/HR, 16 HRS DAILY, 103.8 ML/DAY
     Dates: start: 20100320, end: 20110411

REACTIONS (24)
  - ILEUS [None]
  - POSTOPERATIVE ILEUS [None]
  - URINARY TRACT INFECTION [None]
  - NERVOUSNESS [None]
  - DYSURIA [None]
  - CONSTIPATION [None]
  - PAIN [None]
  - URINE OUTPUT INCREASED [None]
  - HYPOPHAGIA [None]
  - DIZZINESS POSTURAL [None]
  - HYPONATRAEMIA [None]
  - ADRENAL INSUFFICIENCY [None]
  - ANXIETY [None]
  - ABNORMAL DREAMS [None]
  - DRY MOUTH [None]
  - HALLUCINATION [None]
  - VOMITING [None]
  - EXCORIATION [None]
  - ABDOMINAL PAIN [None]
  - URINARY RETENTION [None]
  - NAUSEA [None]
  - FALL [None]
  - CONFUSIONAL STATE [None]
  - MICTURITION URGENCY [None]
